FAERS Safety Report 9552556 (Version 1)
Quarter: 2013Q2

REPORT INFORMATION
  Report Type: Spontaneous
  Country: US (occurrence: None)
  Receive Date: 20130524
  Receipt Date: 20130524
  Transmission Date: 20140414
  Serious: No
  Sender: FDA-Public Use
  Company Number: PHEH2013US004746

PATIENT
  Age: 42 Year
  Sex: Female
  Weight: 53.5 kg

DRUGS (13)
  1. GILENYA [Suspect]
     Route: 048
  2. VITAMIN D3 (COLECALCIFEROL) [Concomitant]
  3. FISH OIL (FISHO OIL) [Concomitant]
  4. VITAMIN C [Concomitant]
  5. ALPHA  LIPOIC ACID) (THIOCTIC ACID) [Concomitant]
  6. CRANBERRY BERCO (ASCORBIC ACID , VACCINIUM MACROCARPON) [Concomitant]
  7. CASCARA SAGRADA (RHAMNUS PURSHIANA) [Concomitant]
  8. B-COMPLEX (CALCIUM PANTOTHENATE, NICOTINAMIDE, PYRIDOXINE HYDRLCHLORIDE, RIBOFLAVIN, THIAMINE HYDROCHLORIDE) [Concomitant]
  9. ABTEI BIOTIN (BIOTIN) [Concomitant]
  10. STOOL SOFTENER (DOCLUSATE SODIUM) [Concomitant]
  11. BACLOFEN (BACLOFEN) [Concomitant]
  12. TIZANIDINE (TIZANIDINE0 [Concomitant]
  13. AMPYRA (FAMPRIDINE) TABLET, 10MG [Concomitant]

REACTIONS (3)
  - Heart rate increased [None]
  - Blood pressure increased [None]
  - Dyspnoea [None]
